FAERS Safety Report 8827289 (Version 1)
Quarter: 2012Q4

REPORT INFORMATION
  Report Type: 
  Country: US (occurrence: US)
  Receive Date: 20121005
  Receipt Date: 20121005
  Transmission Date: 20130627
  Serious: No
  Sender: FDA-Public Use
  Company Number: US-BAYER-2012-103069

PATIENT
  Age: 56 Year
  Sex: Female
  Weight: 70.75 kg

DRUGS (4)
  1. ALEVE [Suspect]
     Indication: ARTHRITIS
     Dosage: 2 DF, QD
     Route: 048
     Dates: start: 20120923
  2. ALEVE CAPLET/TABLET,MIDOL EXTENDED RELIEF CAPLET [Suspect]
     Dosage: 2 DF, QD
     Route: 048
     Dates: start: 2008
  3. ACETAMINOPHEN W/CODEINE [Concomitant]
  4. LISINOPRIL [Concomitant]

REACTIONS (1)
  - Arthritis [None]
